FAERS Safety Report 9032999 (Version 1)
Quarter: 2013Q1

REPORT INFORMATION
  Report Type: Spontaneous
  Country: GB (occurrence: None)
  Receive Date: 20130110
  Receipt Date: 20130110
  Transmission Date: 20140127
  Serious: Yes (Hospitalization)
  Sender: FDA-Public Use
  Company Number: 2013SP000049

PATIENT
  Sex: Female

DRUGS (10)
  1. FLUCONAZOLE [Suspect]
     Indication: ORAL CANDIDIASIS
     Route: 048
     Dates: start: 20110429, end: 20110504
  2. CEFACLOR [Suspect]
     Indication: PRODUCT USED FOR UNKNOWN INDICATION
     Route: 048
     Dates: start: 20110408, end: 20110415
  3. AMOXICILLIN (AMOXICILLIN) [Suspect]
     Indication: PRODUCT USED FOR UNKNOWN INDICATION
     Route: 048
     Dates: start: 20110209, end: 20110404
  4. ERTAPENEM (ERTAPENEM) [Suspect]
     Indication: INTESTINAL PERFORATION
     Route: 042
     Dates: start: 20110424, end: 20110505
  5. LACTULOSE [Concomitant]
  6. ALVERINE [Concomitant]
  7. ASPIRIN [Concomitant]
  8. LERCANIDIPINE [Concomitant]
  9. SIMVASTATIN [Concomitant]
  10. HYOSCINE BUTYLBROMIDE [Concomitant]

REACTIONS (2)
  - Clostridium difficile infection [None]
  - White blood cell count increased [None]
